FAERS Safety Report 6176693-8 (Version None)
Quarter: 2009Q2

REPORT INFORMATION
  Report Type: 
  Country: None (occurrence: None)
  Receive Date: 20090501
  Receipt Date: 20080303
  Transmission Date: 20091009
  Serious: Yes (Death)
  Sender: FDA-Public Use
  Company Number: NL-ALEXION-A200800034

PATIENT

DRUGS (8)
  1. SOLIRIS [Suspect]
     Indication: HAEMOLYSIS
     Dosage: 600 MG, SINGLE
     Route: 042
     Dates: start: 20080229, end: 20080229
  2. SOLIRIS [Suspect]
     Indication: OFF LABEL USE
  3. PREDNISONE [Concomitant]
     Dosage: 100 MG, QD
     Dates: start: 20080201
  4. FRAXIPARINE [Concomitant]
     Dates: start: 20080201
  5. DEXAMETHASONE TAB [Concomitant]
     Dates: start: 20080201
  6. IMMUNE GLOBULIN INTRAVENOUS (HUMAN) [Concomitant]
     Dates: start: 20080201
  7. ETOPOSIDE [Concomitant]
     Dosage: UNK, UNK
     Dates: start: 20080201
  8. ANTIBIOTICS [Concomitant]
     Indication: PROPHYLAXIS
     Dates: start: 20080201

REACTIONS (1)
  - DEATH [None]
